FAERS Safety Report 10093525 (Version 1)
Quarter: 2014Q2

REPORT INFORMATION
  Report Type: Spontaneous
  Country: US (occurrence: US)
  Receive Date: 20140421
  Receipt Date: 20140421
  Transmission Date: 20141212
  Serious: No
  Sender: FDA-Public Use
  Company Number: US-SA-2014SA006134

PATIENT
  Age: 48 Year
  Sex: Female

DRUGS (3)
  1. ALLEGRA [Suspect]
     Indication: MULTIPLE ALLERGIES
     Route: 048
     Dates: start: 20140113, end: 20140113
  2. ALLEGRA [Suspect]
     Indication: EYE PRURITUS
     Route: 048
     Dates: start: 20140113, end: 20140113
  3. ALLEGRA [Suspect]
     Indication: RHINORRHOEA
     Route: 048
     Dates: start: 20140113, end: 20140113

REACTIONS (1)
  - Drug ineffective [Unknown]
